FAERS Safety Report 6718571-9 (Version None)
Quarter: 2010Q2

REPORT INFORMATION
  Report Type: 
  Country: None (occurrence: None)
  Receive Date: 20100504
  Receipt Date: 20100426
  Transmission Date: 20101027
  Serious: Yes (Other)
  Sender: FDA-Public Use
  Company Number: MPS1-1000317

PATIENT
  Age: 27 Year
  Sex: Female

DRUGS (15)
  1. ALDURAZYME [Suspect]
     Indication: MUCOPOLYSACCHARIDOSIS I
     Dosage: 0.58 MG/KG, 1X/W, INTRAVENOUS, INTRATHECAL
     Route: 042
  2. ALDURAZYME [Suspect]
     Indication: MUCOPOLYSACCHARIDOSIS I
     Dosage: 0.58 MG/KG, 1X/W, INTRAVENOUS, INTRATHECAL
     Route: 042
     Dates: start: 20050520
  3. LASIX [Concomitant]
  4. TOPROL-XL [Concomitant]
  5. ACETAZOLAMIDE (ACETAZOLOMIDE) [Concomitant]
  6. MAGNESIUM (MAGNESIUM OXIDE) [Concomitant]
  7. AVINZA [Concomitant]
  8. DIGESTIVES, INCL ENZYMES [Concomitant]
  9. FISH OIL (FISH OIL) [Concomitant]
  10. LYRICA [Concomitant]
  11. MULTIVITAMIN [Concomitant]
  12. TOPIRAMATE [Concomitant]
  13. LEVALBUTEROL HYDROCHLORIDE (LEVOSALBUTAMOL HYDROCHLORIDE) [Concomitant]
  14. MORPHINE [Concomitant]
  15. ONDANSETRON [Concomitant]

REACTIONS (11)
  - ASTHMA [None]
  - CARPAL TUNNEL SYNDROME [None]
  - CHILLS [None]
  - FLUSHING [None]
  - HEADACHE [None]
  - INTRACRANIAL PRESSURE INCREASED [None]
  - NAUSEA [None]
  - NEUROSENSORY HYPOACUSIS [None]
  - RESPIRATORY DISORDER [None]
  - SHUNT OCCLUSION [None]
  - SPINAL CORD COMPRESSION [None]
